FAERS Safety Report 7233784-8 (Version None)
Quarter: 2011Q1

REPORT INFORMATION
  Report Type: 
  Country: None (occurrence: None)
  Receive Date: 20110119
  Receipt Date: 20101123
  Transmission Date: 20110831
  Serious: Yes (Hospitalization)
  Sender: FDA-Public Use
  Company Number: BR-ABBOTT-11P-020-0697944-00

PATIENT
  Sex: Female

DRUGS (8)
  1. HUMIRA [Suspect]
  2. CORDIA VERBENACEA [Concomitant]
     Indication: JOINT SWELLING
     Route: 062
     Dates: start: 20101023
  3. DEFLAZACORT [Concomitant]
     Indication: STEROID THERAPY
     Dosage: 0.5 IN 24 HOURS
     Route: 048
  4. NIMESULIDE [Concomitant]
     Indication: PAIN
     Route: 048
  5. SECNIDAZOLE [Concomitant]
     Indication: INFLAMMATION
     Route: 048
     Dates: start: 20101023
  6. FOLIC ACID [Concomitant]
     Indication: INFLAMMATION
     Route: 048
     Dates: start: 20101023
  7. HUMIRA [Suspect]
     Indication: RHEUMATOID ARTHRITIS
     Route: 058
     Dates: start: 20091201, end: 20101023
  8. CALCIUM [Concomitant]
     Indication: BONE DISORDER
     Route: 048

REACTIONS (9)
  - INCREASED BRONCHIAL SECRETION [None]
  - COUGH [None]
  - BACK PAIN [None]
  - ARTHRALGIA [None]
  - INJECTION SITE SWELLING [None]
  - INJECTION SITE ERYTHEMA [None]
  - VIRAL INFECTION [None]
  - JOINT SWELLING [None]
  - MUSCULOSKELETAL PAIN [None]
